FAERS Safety Report 6496722-1 (Version None)
Quarter: 2009Q4

REPORT INFORMATION
  Report Type: 
  Country: None (occurrence: None)
  Receive Date: 20091211
  Receipt Date: 20091203
  Transmission Date: 20100525
  Serious: Yes (Hospitalization)
  Sender: FDA-Public Use
  Company Number: 2009SP003236

PATIENT
  Age: 79 Year
  Sex: Male
  Weight: 32.9311 kg

DRUGS (4)
  1. LUNESTA [Suspect]
     Indication: MIDDLE INSOMNIA
     Dosage: 3 MG; ORAL
     Route: 048
  2. ASA (CON.) [Concomitant]
  3. BETA BLOCKING [Concomitant]
  4. AGENTS (CON.) [Concomitant]

REACTIONS (3)
  - CONDITION AGGRAVATED [None]
  - CORONARY ARTERY DISEASE [None]
  - MIDDLE INSOMNIA [None]
